FAERS Safety Report 6113660-4 (Version None)
Quarter: 2009Q1

REPORT INFORMATION
  Report Type: 
  Country: None (occurrence: None)
  Receive Date: 20090312
  Receipt Date: 20090303
  Transmission Date: 20090719
  Serious: Yes (Other)
  Sender: FDA-Public Use
  Company Number: PHHY2009BR08175

PATIENT
  Sex: Female

DRUGS (14)
  1. FORASEQ [Suspect]
     Indication: BRONCHITIS
     Dosage: 12/200 MCG
     Dates: start: 20071201
  2. FORASEQ [Suspect]
     Indication: ASTHMA
     Dosage: 1 DF, BID (12/400MCG)
  3. FORMOTEROL W/BUDESONIDE [Concomitant]
  4. BEROTEC [Concomitant]
     Indication: ASTHMA
     Dosage: 2-3 DF PER DAY
  5. BEROTEC [Concomitant]
     Indication: RESPIRATORY DISORDER
  6. SALINE [Concomitant]
  7. SYMBICORT TURBUHALER ^DRACO^ [Concomitant]
     Indication: RESPIRATORY DISORDER
     Dosage: 12/400 MCG
  8. AMINOPHYLLINE [Concomitant]
     Indication: DYSPNOEA
     Dosage: 2-3 TABLETS/DAY, PRN
  9. AMINOPHYLLINE [Concomitant]
     Indication: RESPIRATORY DISORDER
  10. DIAZEPAM [Concomitant]
     Indication: ANXIETY
     Dosage: 0.5 DF, UNK
     Route: 048
  11. TERBUTALINE SULFATE [Concomitant]
     Indication: DYSPNOEA
     Dosage: 2-3 TIMES PER DAY, PRN
  12. TERBUTALINE SULFATE [Concomitant]
     Indication: RESPIRATORY DISORDER
  13. BRICANYL [Concomitant]
     Indication: RESPIRATORY DISORDER
     Dosage: 0.5 DF, DAILY
     Route: 048
  14. TRIAMCINOLONE ACETONIDE [Concomitant]
     Route: 002

REACTIONS (7)
  - APHONIA [None]
  - COUGH [None]
  - DROOLING [None]
  - DRY MOUTH [None]
  - DYSGEUSIA [None]
  - DYSPNOEA [None]
  - PHARYNGEAL OEDEMA [None]
